FAERS Safety Report 23385919 (Version 1)
Quarter: 2024Q1

REPORT INFORMATION
  Report Type: Report from Study
  Country: CN (occurrence: CN)
  Receive Date: 20240110
  Receipt Date: 20240110
  Transmission Date: 20240410
  Serious: Yes (Hospitalization)
  Sender: FDA-Public Use
  Company Number: CN-TAKEDA-2024TUS002236

PATIENT
  Age: 24 Year
  Sex: Male
  Weight: 51 kg

DRUGS (18)
  1. VEDOLIZUMAB [Suspect]
     Active Substance: VEDOLIZUMAB
     Indication: Crohn^s disease
     Dosage: 300 MILLIGRAM
     Route: 042
     Dates: start: 20221214
  2. CALCIUM CARBONATE\CHOLECALCIFEROL [Concomitant]
     Active Substance: CALCIUM CARBONATE\CHOLECALCIFEROL
     Indication: Calcium deficiency
     Dosage: 600 MILLIGRAM, QD
     Route: 048
     Dates: start: 20221215
  3. FUSIDIC ACID [Concomitant]
     Active Substance: FUSIDIC ACID
     Indication: Skin bacterial infection
     Dosage: 1000 MILLIGRAM, TID
     Route: 003
     Dates: start: 20230131, end: 20230202
  4. INFLIXIMAB [Concomitant]
     Active Substance: INFLIXIMAB
     Indication: Inflammatory bowel disease
     Dosage: 300 MILLIGRAM, QD
     Dates: start: 20230201, end: 20230201
  5. INFLIXIMAB [Concomitant]
     Active Substance: INFLIXIMAB
     Dosage: 300 MILLIGRAM, QD
     Dates: start: 20230215, end: 20230215
  6. INFLIXIMAB [Concomitant]
     Active Substance: INFLIXIMAB
     Dosage: 300 MILLIGRAM, QD
     Dates: start: 20230315, end: 20230315
  7. INFLIXIMAB [Concomitant]
     Active Substance: INFLIXIMAB
     Dosage: 300 MILLIGRAM
     Route: 042
     Dates: start: 20230507, end: 20230507
  8. INFLIXIMAB [Concomitant]
     Active Substance: INFLIXIMAB
     Dosage: 300 MILLIGRAM
     Route: 042
     Dates: start: 20230616, end: 20230616
  9. DEXAMETHASONE SODIUM PHOSPHATE [Concomitant]
     Active Substance: DEXAMETHASONE PHOSPHATE\DEXAMETHASONE SODIUM PHOSPHATE
     Indication: Antiallergic therapy
     Dosage: 5 MILLIGRAM, QD
     Route: 042
     Dates: start: 20230201, end: 20230201
  10. DEXAMETHASONE SODIUM PHOSPHATE [Concomitant]
     Active Substance: DEXAMETHASONE PHOSPHATE\DEXAMETHASONE SODIUM PHOSPHATE
     Indication: Immunosuppression
     Dosage: 5 MILLIGRAM, QD
     Route: 042
     Dates: start: 20230507, end: 20230507
  11. DEXAMETHASONE SODIUM PHOSPHATE [Concomitant]
     Active Substance: DEXAMETHASONE PHOSPHATE\DEXAMETHASONE SODIUM PHOSPHATE
     Dosage: 5 MILLIGRAM, QD
     Route: 042
     Dates: start: 20230616, end: 20230616
  12. DOXYCYCLINE [Concomitant]
     Active Substance: DOXYCYCLINE
     Indication: Antiinflammatory therapy
     Dosage: 100 MILLIGRAM, BID
     Route: 048
     Dates: start: 20230201, end: 20230214
  13. DOXYCYCLINE [Concomitant]
     Active Substance: DOXYCYCLINE
     Indication: Antibiotic therapy
  14. SODIUM HYALURONATE [Concomitant]
     Active Substance: HYALURONATE SODIUM
     Indication: Dry eye
     Dosage: UNK UNK, BID
     Dates: start: 20230201
  15. SODIUM HYALURONATE [Concomitant]
     Active Substance: HYALURONATE SODIUM
     Indication: Asthenopia
  16. PREDNISONE ACETATE [Concomitant]
     Active Substance: PREDNISONE ACETATE
     Indication: Infection prophylaxis
     Dosage: 12.5 MILLIGRAM, QD
     Route: 048
     Dates: start: 201912, end: 20230313
  17. PREDNISONE ACETATE [Concomitant]
     Active Substance: PREDNISONE ACETATE
     Indication: Antiallergic therapy
     Dosage: 2.5 MILLIGRAM, QD
     Route: 048
     Dates: start: 20230314
  18. AZATHIOPRINE [Concomitant]
     Active Substance: AZATHIOPRINE
     Indication: Inflammatory bowel disease
     Dosage: 100 MILLIGRAM, BID
     Route: 048
     Dates: start: 20230616

REACTIONS (1)
  - Haemorrhoids [Recovered/Resolved]
